FAERS Safety Report 16590789 (Version 1)
Quarter: 2019Q3

REPORT INFORMATION
  Report Type: Spontaneous
  Country: US (occurrence: US)
  Receive Date: 20190717
  Receipt Date: 20190717
  Transmission Date: 20191004
  Serious: No
  Sender: FDA-Public Use
  Company Number: None

PATIENT
  Sex: Female

DRUGS (1)
  1. METFORMIN [Suspect]
     Active Substance: METFORMIN HYDROCHLORIDE
     Dosage: ?          OTHER FREQUENCY:500MG TWICE DAILY;?

REACTIONS (3)
  - Hallucination [None]
  - Middle insomnia [None]
  - Poor quality sleep [None]
